FAERS Safety Report 23843829 (Version 1)
Quarter: 2024Q2

REPORT INFORMATION
  Report Type: Spontaneous
  Country: PT (occurrence: PT)
  Receive Date: 20240510
  Receipt Date: 20240510
  Transmission Date: 20240716
  Serious: Yes (Death, Hospitalization, Other)
  Sender: FDA-Public Use
  Company Number: PT-009507513-2405PRT002401

PATIENT
  Age: 73 Year
  Sex: Male

DRUGS (23)
  1. KEYTRUDA [Suspect]
     Active Substance: PEMBROLIZUMAB
     Indication: Transitional cell carcinoma metastatic
     Dosage: 200 MG, Q3W(CYCLE 1-5)
  2. KEYTRUDA [Suspect]
     Active Substance: PEMBROLIZUMAB
     Dosage: 400 MG, EVERY 6 WEEKS (Q6W); FROM 6TH CYCLE
     Dates: start: 20210311
  3. KEYTRUDA [Suspect]
     Active Substance: PEMBROLIZUMAB
     Dosage: 200 MG, Q3W SCHEDULE
     Dates: start: 20220329, end: 20220512
  4. DENOSUMAB [Suspect]
     Active Substance: DENOSUMAB
     Dosage: UNK
     Dates: start: 20200529
  5. GEMCITABINE [Suspect]
     Active Substance: GEMCITABINE
     Dosage: UNK, CYCLE(C) 1
     Dates: start: 20200529
  6. GEMCITABINE [Suspect]
     Active Substance: GEMCITABINE
     Dosage: UNK, CYCLE (C) 6
     Dates: start: 20200921
  7. CARBOPLATIN [Suspect]
     Active Substance: CARBOPLATIN
     Dosage: UNK, CYCLE (C) 1
     Dates: start: 20200529
  8. CARBOPLATIN [Suspect]
     Active Substance: CARBOPLATIN
     Dosage: UNK, CYCLE (C) 6
     Dates: start: 20200921
  9. ENFORTUMAB VEDOTIN [Suspect]
     Active Substance: ENFORTUMAB VEDOTIN
     Dosage: 1.25 MILLIGRAM/KILOGRAM; CYCLICALLY
     Dates: start: 20221011, end: 20221213
  10. ENFORTUMAB VEDOTIN [Suspect]
     Active Substance: ENFORTUMAB VEDOTIN
     Dosage: 1 MILLIGRAM/KILOGRAM; CYCLE 4
     Dates: start: 20220321
  11. ENFORTUMAB VEDOTIN [Suspect]
     Active Substance: ENFORTUMAB VEDOTIN
     Dosage: CYCLE 10
     Dates: start: 20231019
  12. SACITUZUMAB GOVITECAN [Suspect]
     Active Substance: SACITUZUMAB GOVITECAN
     Dosage: UNK, CYCLE 1 (C1)
     Dates: start: 20231215
  13. SACITUZUMAB GOVITECAN [Suspect]
     Active Substance: SACITUZUMAB GOVITECAN
     Dosage: UNK, CYCLE 5 (C1)
     Dates: start: 20240322
  14. FUROSEMIDE [Concomitant]
     Active Substance: FUROSEMIDE
     Dosage: ONE DAILY (ID)
  15. LERCANIDIPINE [Concomitant]
     Active Substance: LERCANIDIPINE
     Dosage: ONE DAILY (ID)
  16. BISOPROLOL [Concomitant]
     Active Substance: BISOPROLOL\BISOPROLOL FUMARATE
     Dosage: ONE DAILY (ID)
  17. PROPAFENONE [Concomitant]
     Active Substance: PROPAFENONE
     Dosage: ONE DAILY (ID)
  18. FENOFIBRATE [Concomitant]
     Active Substance: FENOFIBRATE
     Dosage: ONE DAILY (ID)
  19. ALLOPURINOL [Concomitant]
     Active Substance: ALLOPURINOL
     Dosage: ONE DAILY (ID)
  20. LEVOTHYROXINE [Concomitant]
     Active Substance: LEVOTHYROXINE\LEVOTHYROXINE SODIUM
     Dosage: ONE DAILY (ID)
  21. PANTOPRAZOLE [Concomitant]
     Active Substance: PANTOPRAZOLE
     Dosage: ONE DAILY (ID)
  22. SIMVASTATIN [Concomitant]
     Active Substance: SIMVASTATIN
     Dosage: ONE DAILY (ID)
  23. ENOXAPARIN [Concomitant]
     Active Substance: ENOXAPARIN
     Indication: Anticoagulant therapy
     Dosage: ONE DAILY (ID)

REACTIONS (11)
  - Malignant neoplasm progression [Fatal]
  - Colitis [Recovered/Resolved]
  - Colitis [Recovered/Resolved]
  - Pulmonary embolism [Unknown]
  - Seizure [Unknown]
  - Hypothyroidism [Unknown]
  - Therapy partial responder [Unknown]
  - Diarrhoea [Recovered/Resolved]
  - Herpes zoster [Unknown]
  - Decreased appetite [Unknown]
  - Asthenia [Unknown]

NARRATIVE: CASE EVENT DATE: 20210401
